FAERS Safety Report 9161011 (Version 3)
Quarter: 2013Q4

REPORT INFORMATION
  Report Type: Report from Study
  Country: JP (occurrence: JP)
  Receive Date: 20130313
  Receipt Date: 20131028
  Transmission Date: 20140711
  Serious: Yes (Other)
  Sender: FDA-Public Use
  Company Number: JP-VERTEX PHARMACEUTICALS INC.-2013-003419

PATIENT
  Age: 60 Year
  Sex: Male

DRUGS (6)
  1. VX-950 (TELAPREVIR) [Suspect]
     Indication: CHRONIC HEPATITIS C
     Dosage: 1500 MG, QD
     Route: 048
     Dates: start: 20120906, end: 20121129
  2. PEGINTERFERON ALFA-2B [Suspect]
     Indication: CHRONIC HEPATITIS C
     Dosage: 100 ?G, QW
     Route: 058
     Dates: start: 20120906, end: 20120906
  3. PEGINTERFERON ALFA-2B [Suspect]
     Dosage: 50 MCG / BODY / WEEK
     Route: 058
     Dates: start: 20120913, end: 20130221
  4. RIBAVIRIN [Concomitant]
     Dosage: 800 MG, QD
     Route: 048
     Dates: start: 20120906, end: 20130227
  5. GLIMICRON [Concomitant]
     Dosage: 20 MG, QD
     Route: 048
  6. GLACTIV [Concomitant]
     Dosage: 50 MG, QD
     Route: 048

REACTIONS (1)
  - Retinopathy [Recovered/Resolved]
